FAERS Safety Report 9175428 (Version 2)
Quarter: 2013Q2

REPORT INFORMATION
  Report Type: Spontaneous
  Country: FI (occurrence: TH)
  Receive Date: 20130320
  Receipt Date: 20130418
  Transmission Date: 20140414
  Serious: Yes (Other)
  Sender: FDA-Public Use
  Company Number: FI-PFIZER INC-2013087044

PATIENT
  Age: 62 Year
  Sex: Female

DRUGS (2)
  1. ZITHROMAX [Suspect]
     Indication: INFLUENZA
     Dosage: 250 MG (2 TABLETS), 1X/DAY FOR 3 DAYS
     Dates: start: 20130220, end: 20130222
  2. ZITHROMAX [Suspect]
     Indication: PYREXIA

REACTIONS (5)
  - Arrhythmia [Not Recovered/Not Resolved]
  - Cold sweat [Recovered/Resolved]
  - Dizziness [Recovered/Resolved]
  - Heart rate increased [Recovered/Resolved]
  - Cough [Unknown]
